FAERS Safety Report 20369495 (Version 1)
Quarter: 2022Q1

REPORT INFORMATION
  Report Type: Spontaneous
  Country: US (occurrence: None)
  Receive Date: 20220124
  Receipt Date: 20220124
  Transmission Date: 20220423
  Serious: Yes (Hospitalization, Other)
  Sender: FDA-Public Use
  Company Number: US-Hikma Pharmaceuticals-US-H14001-22-00161

PATIENT
  Age: 67 Year
  Sex: Female
  Weight: 89 kg

DRUGS (13)
  1. CYTARABINE [Suspect]
     Active Substance: CYTARABINE
     Indication: Acute myeloid leukaemia
     Dosage: ON DAYS 1-7
     Route: 042
     Dates: start: 20140317
  2. DAUNORUBICIN [Suspect]
     Active Substance: DAUNORUBICIN
     Indication: Acute myeloid leukaemia
     Dosage: ON DAYS 1-3
     Route: 040
     Dates: start: 20140317
  3. GLASDEGIB [Suspect]
     Active Substance: GLASDEGIB
     Indication: Acute myeloid leukaemia
     Route: 065
     Dates: start: 20140314, end: 20140415
  4. LEVAQUIN [Concomitant]
     Active Substance: LEVOFLOXACIN
     Indication: Infection prophylaxis
     Dosage: UNKNOWN
     Route: 065
  5. ACYCLOVIR [Concomitant]
     Active Substance: ACYCLOVIR
     Indication: Antiviral prophylaxis
     Dosage: UNKNOWN
     Route: 065
     Dates: start: 20130319
  6. LEVOFLOXACIN [Concomitant]
     Active Substance: LEVOFLOXACIN
     Indication: Antibiotic prophylaxis
     Dosage: UNKNOWN
     Route: 065
     Dates: start: 20130319
  7. FIORICET [Concomitant]
     Active Substance: ACETAMINOPHEN\BUTALBITAL\CAFFEINE
     Indication: Migraine
     Dosage: UNKNOWN
     Route: 065
  8. CITALOPRAM [Concomitant]
     Active Substance: CITALOPRAM HYDROBROMIDE
     Indication: Depression
     Dosage: UNKNOWN
     Route: 065
  9. ERGOCALCIFEROL [Concomitant]
     Active Substance: ERGOCALCIFEROL
     Indication: Vitamin D deficiency
     Dosage: UNKNOWN
     Route: 065
     Dates: start: 201302, end: 20130406
  10. BENADRYL [Concomitant]
     Active Substance: DIPHENHYDRAMINE HYDROCHLORIDE
     Indication: Transfusion
     Dosage: UNKNOWN
     Route: 065
     Dates: start: 20130328
  11. TYLENOL [Concomitant]
     Active Substance: ACETAMINOPHEN
     Indication: Headache
     Dosage: UNKNOWN
     Route: 065
     Dates: start: 20130326
  12. TYLENOL [Concomitant]
     Active Substance: ACETAMINOPHEN
     Indication: Arthralgia
  13. LEVOTHYROXINE [Concomitant]
     Active Substance: LEVOTHYROXINE
     Indication: Hypothyroidism
     Dosage: UNKNOWN
     Route: 065

REACTIONS (62)
  - Pyrexia [Unknown]
  - Dizziness [Unknown]
  - Back pain [Recovered/Resolved]
  - Vaginal haemorrhage [Recovering/Resolving]
  - Neutrophil count decreased [Unknown]
  - Platelet count decreased [Unknown]
  - Troponin increased [Unknown]
  - Dysstasia [Unknown]
  - Muscular weakness [Unknown]
  - Arthralgia [Unknown]
  - Hypokinesia [Unknown]
  - Nerve compression [Unknown]
  - Muscle swelling [Unknown]
  - Osteoarthritis [Unknown]
  - Spinal osteoarthritis [Unknown]
  - Calcinosis [Unknown]
  - Uterine leiomyoma [Unknown]
  - Tendon disorder [Unknown]
  - Endometrial hypertrophy [Unknown]
  - Myelosuppression [Unknown]
  - Haematocrit decreased [Recovering/Resolving]
  - Bloody discharge [Unknown]
  - Haemoglobin decreased [Unknown]
  - Chest discomfort [Not Recovered/Not Resolved]
  - Electrocardiogram QT prolonged [Unknown]
  - Atelectasis [Unknown]
  - Blood pressure systolic decreased [Recovered/Resolved]
  - Hypotension [Recovered/Resolved]
  - Chest pain [Recovered/Resolved]
  - Confusional state [Unknown]
  - Acute kidney injury [Recovered/Resolved]
  - Hypovolaemia [Unknown]
  - Renal tubular necrosis [Unknown]
  - Oxygen saturation decreased [Unknown]
  - Acute myocardial infarction [Recovered/Resolved]
  - Hypoxia [Unknown]
  - Anaemia [Unknown]
  - Hypertension [Recovered/Resolved]
  - Thrombocytopenia [Unknown]
  - Synovial rupture [Unknown]
  - Arthritis [Unknown]
  - Joint effusion [Unknown]
  - Ventricular hypokinesia [Unknown]
  - Mitral valve sclerosis [Unknown]
  - Mitral valve incompetence [Unknown]
  - Pulmonary hypertension [Unknown]
  - Endometrial disorder [Unknown]
  - Folliculitis [Unknown]
  - Ventricular extrasystoles [Unknown]
  - Supraventricular extrasystoles [Unknown]
  - Left ventricular dysfunction [Recovered/Resolved]
  - Coronary artery disease [Unknown]
  - Coronary ostial stenosis [Recovered/Resolved]
  - Arteriosclerosis [Unknown]
  - Transfusion reaction [Unknown]
  - Blood creatinine increased [Recovered/Resolved]
  - Pain [Unknown]
  - Stress fracture [Unknown]
  - Sepsis [Unknown]
  - Dehydration [Unknown]
  - Coronary artery stenosis [Unknown]
  - Blood creatine phosphokinase increased [Unknown]

NARRATIVE: CASE EVENT DATE: 20140409
